FAERS Safety Report 20175428 (Version 1)
Quarter: 2021Q4

REPORT INFORMATION
  Report Type: Report from Study
  Country: KR (occurrence: KR)
  Receive Date: 20211213
  Receipt Date: 20211213
  Transmission Date: 20220303
  Serious: Yes (Death)
  Sender: FDA-Public Use
  Company Number: KR-TAKEDA-2021TJP008191

PATIENT
  Age: 65 Year
  Sex: Female
  Weight: 49 kg

DRUGS (6)
  1. NIRAPARIB [Suspect]
     Active Substance: NIRAPARIB
     Indication: Fallopian tube cancer
     Dosage: 200 MILLIGRAM, QD
     Route: 048
     Dates: start: 20201005, end: 20210216
  2. LYRICA [Concomitant]
     Active Substance: PREGABALIN
     Indication: Prophylaxis
     Dosage: 300 MILLIGRAM, BID
     Route: 048
     Dates: start: 20200531
  3. LEVOTHYROXINE SODIUM [Concomitant]
     Active Substance: LEVOTHYROXINE SODIUM
     Indication: Thyroid cancer
     Dosage: 100 MICROGRAM, QD
     Route: 048
     Dates: start: 20080701
  4. PREDNISOLONE [Concomitant]
     Active Substance: PREDNISOLONE
     Indication: Dermatomyositis
     Dosage: 5 MILLIGRAM, QD
     Route: 048
     Dates: start: 20190419
  5. DICAMAX [Concomitant]
     Indication: Calcium deficiency
     Dosage: UNK, QD
     Route: 048
     Dates: start: 20200820
  6. CALTEO [Concomitant]
     Indication: Osteoporosis
     Dosage: 750 MILLIGRAM, BID
     Route: 048
     Dates: start: 2021

REACTIONS (1)
  - Pneumonitis [Fatal]

NARRATIVE: CASE EVENT DATE: 20210217
